FAERS Safety Report 17298350 (Version 1)
Quarter: 2020Q3

REPORT INFORMATION
  Report Type: Report from Study
  Country: BE (occurrence: BE)
  Receive Date: 20200121
  Receipt Date: 20200121
  Transmission Date: 20201105
  Serious: Yes (Other)
  Sender: FDA-Public Use
  Company Number: BE-SEATTLE GENETICS-2020SGN00186

PATIENT
  Age: 29 Year
  Sex: Female
  Weight: 59.4 kg

DRUGS (19)
  1. TRAMADOL. [Concomitant]
     Active Substance: TRAMADOL
     Indication: INFLAMMATORY PAIN
  2. THEALOZ DUO [Concomitant]
     Active Substance: HYALURONATE SODIUM\TREHALOSE
     Indication: PROPHYLAXIS
     Dosage: UNK
     Dates: start: 20191129
  3. COLITOFALK [Concomitant]
     Active Substance: MESALAMINE
     Indication: RADIATION INFLAMMATION
     Dosage: UNK
     Dates: start: 20191016
  4. TRAMADOL. [Concomitant]
     Active Substance: TRAMADOL
     Indication: PELVIC PAIN
     Dosage: UNK
     Dates: start: 20191209
  5. THEALOZ DUO [Concomitant]
     Active Substance: HYALURONATE SODIUM\TREHALOSE
     Indication: DRY EYE
     Dosage: UNK
     Dates: start: 20191212
  6. SERELYS [Concomitant]
     Indication: MENOPAUSAL SYMPTOMS
     Dosage: UNK
     Dates: start: 201909
  7. TISOTUMAB VEDOTIN. [Suspect]
     Active Substance: TISOTUMAB VEDOTIN
     Indication: CERVIX CANCER METASTATIC
     Dosage: 2 MILLIGRAM/KILOGRAM, Q3WEEKS
     Route: 042
     Dates: start: 20191129
  8. BECLOMETHASONE                     /00212602/ [Concomitant]
     Active Substance: BECLOMETHASONE
     Indication: RADIATION INFLAMMATION
     Dosage: UNK
     Dates: start: 20191106, end: 20191126
  9. DEXERYL                            /01579901/ [Concomitant]
     Active Substance: GLYCERIN\MINERAL OIL\PETROLATUM
     Indication: RASH
     Dosage: UNK
     Dates: start: 20191206
  10. IBUPROFEN. [Concomitant]
     Active Substance: IBUPROFEN
     Indication: INFLAMMATORY PAIN
     Dosage: UNK
     Dates: start: 20191213
  11. LITICAN                            /00690801/ [Concomitant]
     Active Substance: ALIZAPRIDE
     Indication: NAUSEA
     Dosage: UNK
     Dates: start: 20191202
  12. PEMBROLIZUMAB. [Suspect]
     Active Substance: PEMBROLIZUMAB
     Indication: CERVIX CANCER METASTATIC
     Dosage: 200 MILLIGRAM, Q3WEEKS
     Route: 041
     Dates: start: 20191129
  13. ELOCOM [Concomitant]
     Active Substance: MOMETASONE FUROATE
     Indication: PRURITUS
  14. DAFALGAN [Concomitant]
     Active Substance: ACETAMINOPHEN
     Indication: RADIATION INFLAMMATION
     Dosage: UNK
     Dates: start: 20191007
  15. BRENTUXIMAB VEDOTIN [Suspect]
     Active Substance: BRENTUXIMAB VEDOTIN
     Indication: CERVIX CANCER METASTATIC
     Dosage: 2 MG/KG, QD
     Dates: start: 20191220, end: 20191220
  16. ELOCOM [Concomitant]
     Active Substance: MOMETASONE FUROATE
     Indication: RASH
     Dosage: UNK
     Dates: start: 20191206
  17. VITA POS [Concomitant]
     Active Substance: VITAMIN A PALMITATE
     Indication: DRY EYE
     Dosage: UNK
     Dates: start: 20191212
  18. METRONIDAZOLE. [Concomitant]
     Active Substance: METRONIDAZOLE
     Indication: RASH
     Dosage: UNK
     Dates: start: 20191206
  19. LAXOBERON [Concomitant]
     Active Substance: SODIUM PICOSULFATE
     Indication: RADIATION INFLAMMATION
     Dosage: UNK
     Dates: start: 20191007

REACTIONS (2)
  - No adverse event [Unknown]
  - Wrong product administered [Not Recovered/Not Resolved]

NARRATIVE: CASE EVENT DATE: 20191220
